FAERS Safety Report 6929141-1 (Version None)
Quarter: 2010Q3

REPORT INFORMATION
  Report Type: 
  Country: None (occurrence: None)
  Receive Date: 20100813
  Receipt Date: 20100730
  Transmission Date: 20110219
  Serious: Yes (Life-Threatening, Hospitalization, Other)
  Sender: FDA-Public Use
  Company Number: 232483J08USA

PATIENT
  Age: 43 Year
  Sex: Female
  Weight: 64 kg

DRUGS (3)
  1. REBIF [Suspect]
     Indication: MULTIPLE SCLEROSIS
     Dosage: 44 MCG, 3 IN 1 WK, SUBCUTANEOUS
     Route: 058
     Dates: start: 20070219
  2. LEVOTHYROXINE SODIUM [Concomitant]
  3. TYLENOL (COTYLENOL) [Concomitant]

REACTIONS (15)
  - CERVICAL VERTEBRAL FRACTURE [None]
  - COMA [None]
  - EXOSTOSIS [None]
  - FRONTOTEMPORAL DEMENTIA [None]
  - INJECTION SITE ERYTHEMA [None]
  - INTRACRANIAL PRESSURE INCREASED [None]
  - MULTIPLE SCLEROSIS RELAPSE [None]
  - MUSCLE SPASTICITY [None]
  - NERVE COMPRESSION [None]
  - ROAD TRAFFIC ACCIDENT [None]
  - SPINAL FRACTURE [None]
  - THORACIC VERTEBRAL FRACTURE [None]
  - TRAUMATIC BRAIN INJURY [None]
  - TREATMENT FAILURE [None]
  - UPPER LIMB FRACTURE [None]
